FAERS Safety Report 21550086 (Version 1)
Quarter: 2022Q4

REPORT INFORMATION
  Report Type: Spontaneous
  Country: CA (occurrence: None)
  Receive Date: 20221103
  Receipt Date: 20221103
  Transmission Date: 20230112
  Serious: Yes (Other)
  Sender: FDA-Public Use
  Company Number: 2021A116780

PATIENT
  Age: 75 Year
  Sex: Male

DRUGS (4)
  1. PULMICORT TURBUHALER [Suspect]
     Active Substance: BUDESONIDE
     Indication: Asthma
     Route: 055
  2. FORMOTEROL FUMARATE [Suspect]
     Active Substance: FORMOTEROL FUMARATE
     Indication: Asthma
     Route: 065
  3. NUCALA [Suspect]
     Active Substance: MEPOLIZUMAB
     Indication: Asthma
     Dosage: 100.0MG UNKNOWN
     Route: 042
  4. ALBUTEROL SULFATE [Suspect]
     Active Substance: ALBUTEROL SULFATE
     Indication: Product used for unknown indication
     Dosage: 4.0DF UNKNOWN
     Route: 065

REACTIONS (9)
  - Cough [Unknown]
  - Asthma [Recovering/Resolving]
  - Dyspnoea [Not Recovered/Not Resolved]
  - Eosinophil count increased [Unknown]
  - Loss of personal independence in daily activities [Unknown]
  - Nasal polyps [Unknown]
  - Sleep disorder due to a general medical condition [Unknown]
  - Wheezing [Not Recovered/Not Resolved]
  - Therapeutic product effect incomplete [Unknown]
